FAERS Safety Report 10702593 (Version 1)
Quarter: 2015Q1

REPORT INFORMATION
  Report Type: Spontaneous
  Country: CZ (occurrence: CZ)
  Receive Date: 20150109
  Receipt Date: 20150109
  Transmission Date: 20150721
  Serious: Yes (Life-Threatening)
  Sender: FDA-Public Use
  Company Number: CZ-009507513-1501CZE002662

PATIENT
  Age: 11 Year
  Sex: Female

DRUGS (14)
  1. TEMOZOLOMIDE. [Suspect]
     Active Substance: TEMOZOLOMIDE
     Indication: SPINAL CORD NEOPLASM
     Dosage: 30 MG/M2, QD
     Route: 048
  2. ETOPOSIDE. [Suspect]
     Active Substance: ETOPOSIDE
     Indication: OLIGOASTROCYTOMA
     Dosage: 12.5 MG/M2, QD, (REDUCED TO 50%)
  3. VITAMIN D [Suspect]
     Active Substance: CHOLECALCIFEROL
     Indication: SPINAL CORD NEOPLASM
  4. CELECOXIB. [Suspect]
     Active Substance: CELECOXIB
     Indication: OLIGOASTROCYTOMA
  5. TEMOZOLOMIDE. [Suspect]
     Active Substance: TEMOZOLOMIDE
     Indication: OLIGOASTROCYTOMA
     Dosage: 15 MG/M2, QD, (REDUCED TO 50%)
     Route: 048
  6. BEVACIZUMAB [Suspect]
     Active Substance: BEVACIZUMAB
     Indication: OLIGOASTROCYTOMA
  7. ETOPOSIDE. [Suspect]
     Active Substance: ETOPOSIDE
     Indication: SPINAL CORD NEOPLASM
     Dosage: 25 MG/M2, QD
  8. VITAMIN D [Suspect]
     Active Substance: CHOLECALCIFEROL
     Indication: OLIGOASTROCYTOMA
  9. CELECOXIB. [Suspect]
     Active Substance: CELECOXIB
     Indication: SPINAL CORD NEOPLASM
  10. TRETINOIN. [Suspect]
     Active Substance: TRETINOIN
     Indication: SPINAL CORD NEOPLASM
  11. FENOFIBRATE. [Suspect]
     Active Substance: FENOFIBRATE
     Indication: SPINAL CORD NEOPLASM
  12. BEVACIZUMAB [Suspect]
     Active Substance: BEVACIZUMAB
     Indication: SPINAL CORD NEOPLASM
  13. TRETINOIN. [Suspect]
     Active Substance: TRETINOIN
     Indication: OLIGOASTROCYTOMA
  14. FENOFIBRATE. [Suspect]
     Active Substance: FENOFIBRATE
     Indication: OLIGOASTROCYTOMA

REACTIONS (2)
  - Bone marrow toxicity [Unknown]
  - Drug administration error [Unknown]
